FAERS Safety Report 9177879 (Version 2)
Quarter: 2013Q2

REPORT INFORMATION
  Report Type: Spontaneous
  Country: US (occurrence: None)
  Receive Date: 20120531
  Receipt Date: 20130130
  Transmission Date: 20140414
  Serious: Yes (Other)
  Sender: FDA-Public Use
  Company Number: US201201007299

PATIENT
  Sex: Female

DRUGS (6)
  1. BYETTA (EXENATIDE) PEN, DISPOSABLE [Suspect]
  2. OMEPRAZOLE (OMEPRAZOLE) [Concomitant]
  3. ATENOLOL (ATENOLOL) [Concomitant]
  4. LOSARTAN (LOSARTAN) [Concomitant]
  5. ACTOS /USA/PIOGLIAZONE HYDROCHLORIDE) [Concomitant]
  6. SIMVASTATIN (SIMVASTATIN) [Concomitant]

REACTIONS (1)
  - Pancreatitis acute [None]
